FAERS Safety Report 9587328 (Version 1)
Quarter: 2013Q4

REPORT INFORMATION
  Report Type: Spontaneous
  Country: US (occurrence: None)
  Receive Date: 20131003
  Receipt Date: 20131003
  Transmission Date: 20140711
  Serious: No
  Sender: FDA-Public Use
  Company Number: None

PATIENT
  Sex: Male

DRUGS (1)
  1. EMBREL [Suspect]
     Indication: PSORIATIC ARTHROPATHY
     Dates: start: 20100504

REACTIONS (1)
  - Product quality issue [None]
